FAERS Safety Report 17616228 (Version 1)
Quarter: 2020Q2

REPORT INFORMATION
  Report Type: Report from Study
  Country: US (occurrence: US)
  Receive Date: 20200402
  Receipt Date: 20200402
  Transmission Date: 20200713
  Serious: Yes (Hospitalization)
  Sender: FDA-Public Use
  Company Number: US-ROCHE-2089643

PATIENT
  Age: 62 Year
  Sex: Female
  Weight: 68.55 kg

DRUGS (23)
  1. ZOLOFT [Concomitant]
     Active Substance: SERTRALINE HYDROCHLORIDE
     Dosage: IN THE MORNING
     Route: 048
     Dates: start: 2003
  2. ESBRIET [Suspect]
     Active Substance: PIRFENIDONE
     Dosage: 2 CAPSULES 3 TIMES A DAY ;ONGOING: NO
     Route: 048
  3. CHERATUSSIN [Concomitant]
     Active Substance: AMMONIUM CHLORIDE\DEXTROMETHORPHAN\SODIUM CITRATE
     Dosage: AS NEEDED 1 TSP, EVERY EVENING AT BED TIME, AS NEEDED
     Route: 065
  4. THERATEARS [Concomitant]
     Active Substance: CARBOXYMETHYLCELLULOSE SODIUM
     Dosage: 4-6 TIMES DAILY IN EACH EYE
     Route: 065
     Dates: start: 2009
  5. ATROVENT [Concomitant]
     Active Substance: IPRATROPIUM BROMIDE
     Dosage: 2 PUFF NASAL SPRAY, AS NEEDED
     Route: 045
     Dates: start: 201203, end: 20120417
  6. VITAMIN D3 [Concomitant]
     Active Substance: CHOLECALCIFEROL
     Route: 065
  7. GABAPENTIN. [Concomitant]
     Active Substance: GABAPENTIN
     Dosage: AT BED TIME
     Route: 048
     Dates: start: 2004
  8. DUONEB [Concomitant]
     Active Substance: ALBUTEROL SULFATE\IPRATROPIUM BROMIDE
     Indication: DYSPNOEA
     Dosage: 0.5MG-3MG/3ML AS NEEDED, FOR NEBULIZATION, AS NEEDED
     Route: 065
  9. MUCINEX [Concomitant]
     Active Substance: GUAIFENESIN
     Dosage: AS NEEDED
     Route: 048
     Dates: start: 1998
  10. TYLENOL ARTHRITIS PAIN [Concomitant]
     Active Substance: ACETAMINOPHEN
     Indication: ARTHRITIS
     Dosage: 2 TABLETS, AS NEEDED
     Route: 048
     Dates: start: 2006
  11. FLOVENT [Concomitant]
     Active Substance: FLUTICASONE PROPIONATE
     Dosage: 2 PUFF
     Route: 065
     Dates: start: 1995
  12. GABAPENTIN. [Concomitant]
     Active Substance: GABAPENTIN
     Route: 048
  13. ZYRTEC [Concomitant]
     Active Substance: CETIRIZINE HYDROCHLORIDE
     Dosage: AS NEEDED AT BED TIME
     Route: 048
     Dates: start: 1995
  14. ESBRIET [Suspect]
     Active Substance: PIRFENIDONE
     Dosage: 3 CAPSULES 3 TIMES A DAY ;ONGOING: NO
     Route: 048
  15. LEVOTHYROXINE. [Concomitant]
     Active Substance: LEVOTHYROXINE
     Dosage: IN THE MORNING
     Route: 048
     Dates: start: 201110
  16. ESBRIET [Suspect]
     Active Substance: PIRFENIDONE
     Indication: IDIOPATHIC PULMONARY FIBROSIS
     Dosage: TAKE 3 CAPSULES BY MOUTH 3 X A DAY WITH MEALS
     Route: 048
     Dates: end: 201706
  17. ESBRIET [Suspect]
     Active Substance: PIRFENIDONE
     Dosage: 1 CAPSULE 3 TIMES A DAY ;ONGOING: NO
     Route: 048
  18. FLUTICASONE. [Concomitant]
     Active Substance: FLUTICASONE
     Dosage: SUSPENSION, 50MCG/ACUTATION, 2 SPRAYS IN EACH NOSTRIL
     Route: 045
  19. ESBRIET [Suspect]
     Active Substance: PIRFENIDONE
     Dosage: 1 CAPSULE 3 TIMES A DAY ;ONGOING: YES
     Route: 048
  20. ESBRIET [Suspect]
     Active Substance: PIRFENIDONE
     Dosage: 2 CAPSULE TWICE DAILY AND THEN 3 CAPSULES DAILY
     Route: 048
  21. PRILOSEC [Concomitant]
     Active Substance: OMEPRAZOLE MAGNESIUM
     Route: 065
     Dates: start: 201202
  22. CHLOR-TRIMETON [Concomitant]
     Active Substance: CHLORPHENIRAMINE MALEATE
     Dosage: AS NEEDED
     Route: 048
     Dates: start: 2008
  23. PRAVASTATIN. [Concomitant]
     Active Substance: PRAVASTATIN
     Dosage: 1 TABLET, AT BED TIME
     Route: 048
     Dates: start: 2008

REACTIONS (8)
  - Pneumonia [Unknown]
  - Decreased appetite [Recovered/Resolved]
  - Weight decreased [Recovered/Resolved]
  - Sinusitis [Unknown]
  - Decreased appetite [Recovered/Resolved]
  - Malaise [Unknown]
  - Pyrexia [Unknown]
  - Asthenia [Recovered/Resolved]

NARRATIVE: CASE EVENT DATE: 201703
